FAERS Safety Report 8934414 (Version 2)
Quarter: 2013Q2

REPORT INFORMATION
  Report Type: Spontaneous
  Country: US (occurrence: US)
  Receive Date: 20121128
  Receipt Date: 20130521
  Transmission Date: 20140414
  Serious: No
  Sender: FDA-Public Use
  Company Number: US-009507513-1211USA011500

PATIENT
  Sex: Female
  Weight: 127.89 kg

DRUGS (1)
  1. IMPLANON [Suspect]
     Indication: MENORRHAGIA
     Dosage: 1 ROD
     Route: 059
     Dates: start: 20120221, end: 20121217

REACTIONS (3)
  - Vaginal haemorrhage [Not Recovered/Not Resolved]
  - Device breakage [Recovered/Resolved]
  - Device kink [Recovered/Resolved]
